FAERS Safety Report 7743777-X (Version None)
Quarter: 2011Q3

REPORT INFORMATION
  Report Type: 
  Country: None (occurrence: None)
  Receive Date: 20110912
  Receipt Date: 20110902
  Transmission Date: 20111222
  Serious: Yes (Hospitalization)
  Sender: FDA-Public Use
  Company Number: US-GLAXOSMITHKLINE-A0793130A

PATIENT
  Age: 46 Year
  Sex: Male

DRUGS (5)
  1. TRICOR [Concomitant]
  2. GLYBURIDE [Concomitant]
  3. CARDIZEM [Concomitant]
  4. AVAPRO [Concomitant]
  5. AVANDIA [Suspect]
     Indication: DIABETES MELLITUS
     Dosage: 8MG PER DAY
     Route: 048
     Dates: start: 20000101, end: 20090301

REACTIONS (3)
  - MYOCARDIAL INFARCTION [None]
  - CORONARY ARTERY DISEASE [None]
  - CARDIOVASCULAR DISORDER [None]
